FAERS Safety Report 7265897-9 (Version None)
Quarter: 2011Q1

REPORT INFORMATION
  Report Type: 
  Country: None (occurrence: None)
  Receive Date: 20110131
  Receipt Date: 20110124
  Transmission Date: 20110831
  Serious: Yes (Death, Congenital Anomaly)
  Sender: FDA-Public Use
  Company Number: B0695642A

PATIENT

DRUGS (1)
  1. DEROXAT [Suspect]
     Dosage: 10MG PER DAY
     Route: 064
     Dates: end: 20090501

REACTIONS (4)
  - MICROCEPHALY [None]
  - FOETAL GROWTH RESTRICTION [None]
  - KIDNEY SMALL [None]
  - DRUG EXPOSURE DURING PREGNANCY [None]
